FAERS Safety Report 6055383-6 (Version None)
Quarter: 2009Q1

REPORT INFORMATION
  Report Type: 
  Country: None (occurrence: None)
  Receive Date: 20090123
  Receipt Date: 20090109
  Transmission Date: 20090719
  Serious: Yes (Other)
  Sender: FDA-Public Use
  Company Number: 2009S1000485

PATIENT
  Age: 55 Year
  Sex: Female

DRUGS (10)
  1. FENTANYL TRANSDERMAL SYSTEM [Suspect]
     Indication: COMPLEX REGIONAL PAIN SYNDROME
     Dosage: 50 UG; EVERY HOUR; TRANSDERMAL, 100 UG; EVERY HOUR; TRANSDERMAL, 50 UG; EVERY HOUR; TRANSDERMAL
     Route: 062
     Dates: start: 20050101, end: 20090101
  2. FENTANYL TRANSDERMAL SYSTEM [Suspect]
     Indication: FIBROMYALGIA
     Dosage: 50 UG; EVERY HOUR; TRANSDERMAL, 100 UG; EVERY HOUR; TRANSDERMAL, 50 UG; EVERY HOUR; TRANSDERMAL
     Route: 062
     Dates: start: 20050101, end: 20090101
  3. FENTANYL TRANSDERMAL SYSTEM [Suspect]
     Indication: PAIN
     Dosage: 50 UG; EVERY HOUR; TRANSDERMAL, 100 UG; EVERY HOUR; TRANSDERMAL, 50 UG; EVERY HOUR; TRANSDERMAL
     Route: 062
     Dates: start: 20050101, end: 20090101
  4. FENTANYL TRANSDERMAL SYSTEM [Suspect]
     Indication: COMPLEX REGIONAL PAIN SYNDROME
     Dosage: 50 UG; EVERY HOUR; TRANSDERMAL, 100 UG; EVERY HOUR; TRANSDERMAL, 50 UG; EVERY HOUR; TRANSDERMAL
     Route: 062
     Dates: end: 20090104
  5. FENTANYL TRANSDERMAL SYSTEM [Suspect]
     Indication: FIBROMYALGIA
     Dosage: 50 UG; EVERY HOUR; TRANSDERMAL, 100 UG; EVERY HOUR; TRANSDERMAL, 50 UG; EVERY HOUR; TRANSDERMAL
     Route: 062
     Dates: end: 20090104
  6. FENTANYL TRANSDERMAL SYSTEM [Suspect]
     Indication: PAIN
     Dosage: 50 UG; EVERY HOUR; TRANSDERMAL, 100 UG; EVERY HOUR; TRANSDERMAL, 50 UG; EVERY HOUR; TRANSDERMAL
     Route: 062
     Dates: end: 20090104
  7. FENTANYL TRANSDERMAL SYSTEM [Suspect]
     Indication: COMPLEX REGIONAL PAIN SYNDROME
     Dosage: 50 UG; EVERY HOUR; TRANSDERMAL, 100 UG; EVERY HOUR; TRANSDERMAL, 50 UG; EVERY HOUR; TRANSDERMAL
     Route: 062
     Dates: start: 20090108
  8. FENTANYL TRANSDERMAL SYSTEM [Suspect]
     Indication: FIBROMYALGIA
     Dosage: 50 UG; EVERY HOUR; TRANSDERMAL, 100 UG; EVERY HOUR; TRANSDERMAL, 50 UG; EVERY HOUR; TRANSDERMAL
     Route: 062
     Dates: start: 20090108
  9. FENTANYL TRANSDERMAL SYSTEM [Suspect]
     Indication: PAIN
     Dosage: 50 UG; EVERY HOUR; TRANSDERMAL, 100 UG; EVERY HOUR; TRANSDERMAL, 50 UG; EVERY HOUR; TRANSDERMAL
     Route: 062
     Dates: start: 20090108
  10. LIDODERM [Concomitant]

REACTIONS (3)
  - INCORRECT DOSE ADMINISTERED [None]
  - OVERDOSE [None]
  - RESPIRATORY ARREST [None]
